FAERS Safety Report 23231817 (Version 1)
Quarter: 2023Q4

REPORT INFORMATION
  Report Type: Spontaneous
  Country: CN (occurrence: CN)
  Receive Date: 20231127
  Receipt Date: 20231127
  Transmission Date: 20240110
  Serious: Yes (Hospitalization)
  Sender: FDA-Public Use
  Company Number: CN-BAYER-2023A168117

PATIENT
  Age: 39 Year
  Sex: Female
  Weight: 60 kg

DRUGS (1)
  1. YAZ [Suspect]
     Active Substance: DROSPIRENONE\ETHINYL ESTRADIOL
     Indication: Antiinflammatory therapy
     Dosage: 1 DF, QD
     Route: 048
     Dates: start: 20230924, end: 20231113

REACTIONS (6)
  - Headache [Recovering/Resolving]
  - Hypertension [Recovering/Resolving]
  - Lipids abnormal [Recovering/Resolving]
  - Hepatic function abnormal [Recovering/Resolving]
  - Affect lability [Recovering/Resolving]
  - Off label use [None]

NARRATIVE: CASE EVENT DATE: 20230924
